FAERS Safety Report 23923425 (Version 2)
Quarter: 2024Q2

REPORT INFORMATION
  Report Type: Other
  Country: US (occurrence: None)
  Receive Date: 20240531
  Receipt Date: 20240610
  Transmission Date: 20240716
  Serious: No
  Sender: FDA-Public Use
  Company Number: US-ROCHE-3571306

PATIENT
  Age: 73 Year
  Sex: Male
  Weight: 89.5 kg

DRUGS (14)
  1. XOLAIR [Suspect]
     Active Substance: OMALIZUMAB
     Indication: Urticaria
     Dosage: DOT: 10/05/2023, EVERY 28 DAYS DATE OF TREATMENT: 02/APR/2024, 07/MAY/2024
     Route: 058
     Dates: start: 202309
  2. XOLAIR [Suspect]
     Active Substance: OMALIZUMAB
  3. XOLAIR [Suspect]
     Active Substance: OMALIZUMAB
  4. XOLAIR [Suspect]
     Active Substance: OMALIZUMAB
     Indication: Urticaria chronic
  5. XOLAIR [Suspect]
     Active Substance: OMALIZUMAB
  6. XOLAIR [Suspect]
     Active Substance: OMALIZUMAB
  7. CETIRIZINE HYDROCHLORIDE [Concomitant]
     Active Substance: CETIRIZINE HYDROCHLORIDE
  8. MONTELUKAST SODIUM [Concomitant]
     Active Substance: MONTELUKAST SODIUM
  9. FAMOTIDINE [Concomitant]
     Active Substance: FAMOTIDINE
  10. APIXABAN [Concomitant]
     Active Substance: APIXABAN
  11. TAMSULOSIN [Concomitant]
     Active Substance: TAMSULOSIN
  12. OMEPRAZOLE [Concomitant]
     Active Substance: DONEPEZIL HYDROCHLORIDE\OMEPRAZOLE\OMEPRAZOLE MAGNESIUM
  13. BENADRYL ALLERGY [Concomitant]
     Active Substance: DIPHENHYDRAMINE HYDROCHLORIDE
  14. EPINEPHRINE [Concomitant]
     Active Substance: EPINEPHRINE

REACTIONS (10)
  - Heart rate decreased [Unknown]
  - Hypotension [Unknown]
  - Flushing [Unknown]
  - Mastocytosis [Unknown]
  - Tryptase increased [Unknown]
  - Syncope [Unknown]
  - Palpitations [Unknown]
  - Extrasystoles [Unknown]
  - Dyspepsia [Unknown]
  - Off label use [Unknown]
